FAERS Safety Report 12643586 (Version 3)
Quarter: 2016Q3

REPORT INFORMATION
  Report Type: Report from Study
  Country: BR (occurrence: BR)
  Receive Date: 20160811
  Receipt Date: 20160901
  Transmission Date: 20161109
  Serious: Yes (Other)
  Sender: FDA-Public Use
  Company Number: PHHY2016BR108912

PATIENT
  Age: 11 Month
  Sex: Male
  Weight: 11.5 kg

DRUGS (4)
  1. TRILEPTAL [Suspect]
     Active Substance: OXCARBAZEPINE
     Indication: SEIZURE
     Dosage: 60 MG/ML, UNK
     Route: 048
     Dates: start: 201512
  2. PROVANCE [Concomitant]
     Indication: DYSBACTERIOSIS
     Route: 065
  3. TRILEPTAL [Suspect]
     Active Substance: OXCARBAZEPINE
     Indication: EPILEPSY
     Dosage: 1.5 ML, BID
     Route: 048
     Dates: start: 20160803
  4. TRILEPTAL [Suspect]
     Active Substance: OXCARBAZEPINE
     Indication: MENINGITIS VIRAL

REACTIONS (14)
  - Insomnia [Recovering/Resolving]
  - Pain [Recovered/Resolved]
  - Erythema [Recovering/Resolving]
  - Product colour issue [Unknown]
  - Anger [Unknown]
  - Head banging [Recovering/Resolving]
  - Toxicity to various agents [Recovering/Resolving]
  - Pyrexia [Unknown]
  - Crying [Recovered/Resolved]
  - Nervousness [Recovered/Resolved]
  - Expired product administered [Unknown]
  - Flatulence [Recovered/Resolved]
  - Abdominal pain [Recovered/Resolved]
  - Rhinitis [Not Recovered/Not Resolved]

NARRATIVE: CASE EVENT DATE: 201602
